FAERS Safety Report 22187107 (Version 1)
Quarter: 2023Q2

REPORT INFORMATION
  Report Type: Spontaneous
  Country: US (occurrence: None)
  Receive Date: 20230407
  Receipt Date: 20230407
  Transmission Date: 20230721
  Serious: Yes (Hospitalization, Disabling)
  Sender: FDA-Public Use
  Company Number: None

PATIENT
  Age: 75 Year
  Sex: Male
  Weight: 93.6 kg

DRUGS (20)
  1. DUPIXENT [Suspect]
     Active Substance: DUPILUMAB
     Indication: Pruritus
     Dosage: OTHER QUANTITY : 1 INJECTION(S);?OTHER FREQUENCY : EVERY TWO WEEKS;?
     Route: 058
     Dates: start: 20220922
  2. DUPIXENT [Suspect]
     Active Substance: DUPILUMAB
     Indication: Dermatitis bullous
  3. DUPIXENT [Suspect]
     Active Substance: DUPILUMAB
     Indication: Skin lesion
  4. PANTOPRAZOLE [Concomitant]
     Active Substance: PANTOPRAZOLE
  5. LOSARTAN [Concomitant]
     Active Substance: LOSARTAN
  6. METOPROLOL [Concomitant]
     Active Substance: METOPROLOL
  7. ALLOPURINOL [Concomitant]
     Active Substance: ALLOPURINOL
  8. TORSEMIDE [Concomitant]
     Active Substance: TORSEMIDE
  9. VALACYCLOVIR [Concomitant]
     Active Substance: VALACYCLOVIR HYDROCHLORIDE
  10. INDOMETHACIN [Suspect]
     Active Substance: INDOMETHACIN
  11. APIXABAN [Concomitant]
     Active Substance: APIXABAN
  12. ATORVASTATIN [Concomitant]
     Active Substance: ATORVASTATIN
  13. OXYBUTYNIN [Concomitant]
     Active Substance: OXYBUTYNIN
  14. CLOBETASOL [Concomitant]
     Active Substance: CLOBETASOL
  15. DUPIXENT [Concomitant]
     Active Substance: DUPILUMAB
  16. VITAMINS [Concomitant]
     Active Substance: VITAMINS
  17. VITAMIN C [Concomitant]
     Active Substance: ASCORBIC ACID
  18. VITAMIN D NOS [Concomitant]
     Active Substance: VITAMIN D NOS
  19. lwo-dose aspirin [Concomitant]
  20. MELATONIN [Concomitant]
     Active Substance: MELATONIN

REACTIONS (6)
  - Herpes zoster oticus [None]
  - Pyrexia [None]
  - Myalgia [None]
  - Dysphagia [None]
  - Gait disturbance [None]
  - Herpes zoster reactivation [None]

NARRATIVE: CASE EVENT DATE: 20221101
